FAERS Safety Report 17492743 (Version 1)
Quarter: 2020Q1

REPORT INFORMATION
  Report Type: Spontaneous
  Country: US (occurrence: US)
  Receive Date: 20200304
  Receipt Date: 20200304
  Transmission Date: 20200409
  Serious: No
  Sender: FDA-Public Use
  Company Number: US-ASTRAZENECA-2020SE18694

PATIENT
  Age: 28838 Day
  Sex: Female
  Weight: 70.3 kg

DRUGS (1)
  1. SYMBICORT [Suspect]
     Active Substance: BUDESONIDE\FORMOTEROL FUMARATE DIHYDRATE
     Indication: ASTHMA
     Dosage: 160/4.5 MCG; 2 PUFFS TWICE A DAY
     Route: 055

REACTIONS (13)
  - Head injury [Recovering/Resolving]
  - Fall [Recovering/Resolving]
  - Incorrect dose administered [Unknown]
  - Headache [Unknown]
  - Upper respiratory tract infection [Unknown]
  - Device malfunction [Unknown]
  - Product dose omission [Recovered/Resolved]
  - Weight loss poor [Unknown]
  - Confusional state [Recovering/Resolving]
  - Contusion [Recovering/Resolving]
  - Intentional device misuse [Unknown]
  - Cough [Unknown]
  - Hypersensitivity [Unknown]

NARRATIVE: CASE EVENT DATE: 202001
